FAERS Safety Report 14336269 (Version 2)
Quarter: 2018Q1

REPORT INFORMATION
  Report Type: Spontaneous
  Country: GB (occurrence: GB)
  Receive Date: 20171229
  Receipt Date: 20180323
  Transmission Date: 20180509
  Serious: Yes (Death)
  Sender: FDA-Public Use
  Company Number: GB-AUROBINDO-AUR-APL-2017-45913

PATIENT
  Sex: Male

DRUGS (28)
  1. CODEINE [Interacting]
     Active Substance: CODEINE
     Dosage: ()
     Route: 065
  2. BUPRENORPHINE. [Interacting]
     Active Substance: BUPRENORPHINE
     Dosage: UNK ()
  3. MORPHINE [Suspect]
     Active Substance: MORPHINE
     Dosage: UNK ()
  4. METHADONE [Interacting]
     Active Substance: METHADONE HYDROCHLORIDE
     Indication: PRODUCT USED FOR UNKNOWN INDICATION
     Dosage: ()
     Route: 065
  5. CODEINE [Interacting]
     Active Substance: CODEINE
     Dosage: ()
     Route: 065
  6. DIAZEPAM. [Interacting]
     Active Substance: DIAZEPAM
     Dosage: ()
     Route: 065
  7. MORPHINE [Suspect]
     Active Substance: MORPHINE
     Indication: PRODUCT USED FOR UNKNOWN INDICATION
     Dosage: UNK ()
     Route: 065
  8. COCAINE [Interacting]
     Active Substance: COCAINE
     Indication: PRODUCT USED FOR UNKNOWN INDICATION
     Dosage: ()
     Route: 065
  9. DIAZEPAM. [Interacting]
     Active Substance: DIAZEPAM
     Dosage: ()
     Route: 065
  10. NOSCAPINE [Interacting]
     Active Substance: NOSCAPINE
     Indication: PRODUCT USED FOR UNKNOWN INDICATION
     Dosage: ()
     Route: 065
  11. MIRTAZAPINE. [Interacting]
     Active Substance: MIRTAZAPINE
     Dosage: ()
     Route: 065
  12. ZOPICLONE [Interacting]
     Active Substance: ZOPICLONE
     Dosage: UNK ()
  13. DIAZEPAM. [Interacting]
     Active Substance: DIAZEPAM
     Dosage: UNK ()
  14. TEMAZEPAM. [Interacting]
     Active Substance: TEMAZEPAM
     Indication: PRODUCT USED FOR UNKNOWN INDICATION
     Dosage: ()
     Route: 065
  15. CODEINE [Interacting]
     Active Substance: CODEINE
     Dosage: UNK ()
  16. MORPHINE [Suspect]
     Active Substance: MORPHINE
     Dosage: ()
     Route: 065
  17. TEMAZEPAM. [Interacting]
     Active Substance: TEMAZEPAM
     Dosage: ()
     Route: 065
  18. PREGABALIN. [Interacting]
     Active Substance: PREGABALIN
     Indication: PRODUCT USED FOR UNKNOWN INDICATION
     Dosage: ()
     Route: 065
  19. BUPRENORPHINE. [Interacting]
     Active Substance: BUPRENORPHINE
     Indication: PRODUCT USED FOR UNKNOWN INDICATION
     Dosage: UNK ()
     Route: 065
  20. CODEINE [Interacting]
     Active Substance: CODEINE
     Indication: PRODUCT USED FOR UNKNOWN INDICATION
     Dosage: UNK ()
     Route: 065
  21. PREGABALIN. [Interacting]
     Active Substance: PREGABALIN
     Dosage: UNK ()
     Route: 065
  22. ZOPICLONE [Interacting]
     Active Substance: ZOPICLONE
     Indication: PRODUCT USED FOR UNKNOWN INDICATION
     Dosage: UNK ()
     Route: 065
  23. DIAZEPAM. [Interacting]
     Active Substance: DIAZEPAM
     Indication: PRODUCT USED FOR UNKNOWN INDICATION
     Dosage: UNK ()
     Route: 065
  24. LEVAMISOLE [Interacting]
     Active Substance: LEVAMISOLE
     Indication: PRODUCT USED FOR UNKNOWN INDICATION
     Dosage: ()
     Route: 065
  25. PREGABALIN. [Interacting]
     Active Substance: PREGABALIN
     Indication: PRODUCT USED FOR UNKNOWN INDICATION
     Dosage: ()
     Route: 065
  26. MIRTAZAPINE. [Suspect]
     Active Substance: MIRTAZAPINE
     Indication: PRODUCT USED FOR UNKNOWN INDICATION
     Dosage: ()
     Route: 065
  27. LEVAMISOLE [Interacting]
     Active Substance: LEVAMISOLE
     Dosage: ()
     Route: 065
  28. PAPAVERINE [Interacting]
     Active Substance: PAPAVERINE
     Indication: PRODUCT USED FOR UNKNOWN INDICATION
     Dosage: ()
     Route: 065

REACTIONS (5)
  - Clumsiness [Unknown]
  - Drug interaction [Fatal]
  - Toxicity to various agents [Fatal]
  - Dysarthria [Unknown]
  - Death [Fatal]
